FAERS Safety Report 7813055-9 (Version None)
Quarter: 2011Q4

REPORT INFORMATION
  Report Type: 
  Country: None (occurrence: None)
  Receive Date: 20111013
  Receipt Date: 20110930
  Transmission Date: 20120403
  Serious: Yes (Hospitalization, Other)
  Sender: FDA-Public Use
  Company Number: PHHY2011FR74842

PATIENT
  Sex: Male
  Weight: 86 kg

DRUGS (8)
  1. PLAVIX [Concomitant]
     Dosage: 1 DF, UNK
  2. METFORMIN HCL [Concomitant]
     Dosage: 3 DF, UNK
  3. PANTOPRAZOLE SODIUM [Concomitant]
     Dosage: 1 DF, UNK
  4. ATORVASTATIN CALCIUM [Concomitant]
     Dosage: 1 DF, UNK
  5. ONBREZ [Suspect]
     Dosage: 1 DF, UNK
     Dates: start: 20110728, end: 20110816
  6. ASPIRIN [Concomitant]
     Dosage: 1 DF, UNK
  7. BISOPROLOL FUMARATE [Concomitant]
     Dosage: 0.5 DF, UNK
  8. MICARDIS [Concomitant]
     Dosage: 1 DF, UNK

REACTIONS (3)
  - ARTERIOSCLEROSIS CORONARY ARTERY [None]
  - CHEST PAIN [None]
  - ANGINA PECTORIS [None]
